FAERS Safety Report 18915991 (Version 1)
Quarter: 2021Q1

REPORT INFORMATION
  Report Type: Spontaneous
  Country: US (occurrence: US)
  Receive Date: 20210218
  Receipt Date: 20210218
  Transmission Date: 20210420
  Serious: Yes (Other)
  Sender: FDA-Public Use
  Company Number: US-IBSA PHARMA INC.-2021CHE000010

PATIENT

DRUGS (3)
  1. OXYCODONE [Interacting]
     Active Substance: OXYCODONE
     Dosage: UNK
  2. LEVOTHYROXINE SODIUM. [Suspect]
     Active Substance: LEVOTHYROXINE SODIUM
     Indication: PRODUCT USED FOR UNKNOWN INDICATION
     Dosage: UNK
  3. PROMACTA [Interacting]
     Active Substance: ELTROMBOPAG OLAMINE
     Indication: IMMUNE THROMBOCYTOPENIA
     Dosage: 25 MG, UNK
     Route: 048
     Dates: start: 20201106

REACTIONS (3)
  - Oesophageal varices haemorrhage [Unknown]
  - Drug interaction [Unknown]
  - Platelet count decreased [Unknown]
